FAERS Safety Report 9518758 (Version 3)
Quarter: 2013Q4

REPORT INFORMATION
  Report Type: Spontaneous
  Country: AR (occurrence: AR)
  Receive Date: 20130912
  Receipt Date: 20131203
  Transmission Date: 20140711
  Serious: Yes (Other)
  Sender: FDA-Public Use
  Company Number: AR-AMGEN-ARGSP2013056080

PATIENT
  Age: 48 Year
  Sex: Female

DRUGS (1)
  1. ENBREL [Suspect]
     Indication: RHEUMATOID ARTHRITIS
     Dosage: 50 MG, WEEKLY
     Route: 065
     Dates: start: 20050715, end: 2013

REACTIONS (9)
  - Musculoskeletal disorder [Recovering/Resolving]
  - Arthropathy [Recovered/Resolved]
  - Injection site injury [Recovered/Resolved]
  - Activities of daily living impaired [Recovering/Resolving]
  - Tooth disorder [Unknown]
  - Application site haematoma [Unknown]
  - Injection site pain [Recovered/Resolved]
  - H1N1 influenza [Recovered/Resolved]
  - Injection site erythema [Recovered/Resolved]
